FAERS Safety Report 18532348 (Version 1)
Quarter: 2020Q4

REPORT INFORMATION
  Report Type: Spontaneous
  Country: DE (occurrence: DE)
  Receive Date: 20201123
  Receipt Date: 20201123
  Transmission Date: 20210114
  Serious: Yes (Death, Other)
  Sender: FDA-Public Use
  Company Number: DE-AUROBINDO-AUR-APL-2020-057337

PATIENT

DRUGS (16)
  1. IFOSFAMIDE. [Suspect]
     Active Substance: IFOSFAMIDE
     Indication: CENTRAL NERVOUS SYSTEM LYMPHOMA
     Dosage: 800 MILLIGRAM/SQ. METER, EVERY 2 WEEKS (CYCLE 5, DAY 2-4)
     Route: 042
  2. METHOTREXATE. [Suspect]
     Active Substance: METHOTREXATE
     Dosage: 2.5 MILLIGRAM, EVERY 2 WEEKS (CYCLE 5, DAY 2-4) WITH PREDNISOLONE
     Route: 065
  3. METHOTREXATE. [Suspect]
     Active Substance: METHOTREXATE
     Dosage: 4000 MILLIGRAM/SQ. METER, EVERY 2 WEEKS  (CYCLE 5, DAY 1)
     Route: 042
  4. PREDNISOLONE. [Suspect]
     Active Substance: PREDNISOLONE
     Indication: CENTRAL NERVOUS SYSTEM LYMPHOMA
     Dosage: 3 MILLIGRAM, ICV, EVERY 3 WEEKS (CYCLE 4 + 6, DAY 3-5) WITH METHOTREXATE
     Route: 065
  5. RITUXIMAB. [Suspect]
     Active Substance: RITUXIMAB
     Indication: CENTRAL NERVOUS SYSTEM LYMPHOMA
     Dosage: 375 MILLIGRAM/SQ. METER, EVERY 2 WEEKS (CYCLE 1-3, DAY 0)
     Route: 042
  6. PREDNISOLONE. [Suspect]
     Active Substance: PREDNISOLONE
     Dosage: 3 MILLIGRAM, ICV, EVERY 2 WEEKS (CYCLE 5, DAY 2-4)
     Route: 065
  7. IFOSFAMIDE. [Suspect]
     Active Substance: IFOSFAMIDE
     Dosage: 800 MILLIGRAM/SQ. METER, EVERY 2 WEEKS (CYCLE 1-3, DAY 2-4)
     Route: 042
  8. ARA-C [Suspect]
     Active Substance: CYTARABINE
     Dosage: 30 MILLIGRAM/SQ. METER, EVERY 3 WEEKS (CYCLE 4 + 6, DAY 1-2)
     Route: 042
  9. MESNA. [Suspect]
     Active Substance: MESNA
     Indication: DRUG TOXICITY PROPHYLAXIS
     Dosage: ADMINISTERED WITH IFOSFAMIDE AS PROTECTION
     Route: 065
  10. G-CSF [Suspect]
     Active Substance: GRANULOCYTE COLONY-STIMULATING FACTOR NOS
     Indication: PROPHYLAXIS
     Dosage: AT EACH CYCLE
     Route: 065
  11. SULFAMETHOXAZOLE;TRIMETHOPRIM [Suspect]
     Active Substance: SULFAMETHOXAZOLE\TRIMETHOPRIM
     Indication: PRODUCT USED FOR UNKNOWN INDICATION
     Dosage: AT EACH CYCLE
     Route: 065
  12. ACICLOVIR [Suspect]
     Active Substance: ACYCLOVIR
     Indication: PRODUCT USED FOR UNKNOWN INDICATION
     Dosage: AT EACH CYCLE
     Route: 065
  13. ARA-C [Suspect]
     Active Substance: CYTARABINE
     Indication: CENTRAL NERVOUS SYSTEM LYMPHOMA
     Dosage: 10 MILLIGRAM, EVERY 2 WEEKS (CYCLE 5, DAY 5)
     Route: 065
  14. ARA-C [Suspect]
     Active Substance: CYTARABINE
     Dosage: 10 MILLIGRAM, EVERY 3 WEEKS (CYCLE 4 + 6, DAY 6)
     Route: 065
  15. METHOTREXATE. [Suspect]
     Active Substance: METHOTREXATE
     Indication: CENTRAL NERVOUS SYSTEM LYMPHOMA
     Dosage: 4000 MILLIGRAM/SQ. METER, EVERY 2 WEEKS (CYCLE 1-3, DAY 1)
     Route: 065
  16. METHOTREXATE. [Suspect]
     Active Substance: METHOTREXATE
     Dosage: 2.5 MILLIGRAM, EVERY 3 WEEKS (CYCLE 4 + 6, DAY 3-5)
     Route: 065

REACTIONS (2)
  - Sepsis [Fatal]
  - Myelosuppression [Fatal]
